FAERS Safety Report 4307799-3 (Version None)
Quarter: 2004Q1

REPORT INFORMATION
  Report Type: 
  Country: None (occurrence: None)
  Receive Date: 20040223
  Receipt Date: 20040212
  Transmission Date: 20041129
  Serious: Yes (Hospitalization, Other)
  Sender: FDA-Public Use
  Company Number: HQ2006522APR2002

PATIENT
  Age: 19 Year
  Sex: Male
  Weight: 102.2 kg

DRUGS (2)
  1. BENEFIX [Suspect]
     Indication: FACTOR IX DEFICIENCY
     Dosage: 9000 UNITS, INTRAVENOUS
     Route: 042
     Dates: start: 20010831, end: 20010831
  2. BENEFIX [Suspect]

REACTIONS (10)
  - ABDOMINAL PAIN UPPER [None]
  - DIZZINESS [None]
  - FEELING ABNORMAL [None]
  - HYPERHIDROSIS [None]
  - INFUSION RELATED REACTION [None]
  - NAUSEA [None]
  - PALLOR [None]
  - PARAESTHESIA [None]
  - SYNCOPE VASOVAGAL [None]
  - VOMITING [None]
